FAERS Safety Report 7413211-8 (Version None)
Quarter: 2011Q2

REPORT INFORMATION
  Report Type: 
  Country: None (occurrence: None)
  Receive Date: 20110413
  Receipt Date: 20110329
  Transmission Date: 20111010
  Serious: Yes (Hospitalization)
  Sender: FDA-Public Use
  Company Number: FR-GENENTECH-316398

PATIENT
  Sex: Female
  Weight: 52 kg

DRUGS (18)
  1. RITUXIMAB [Suspect]
     Dosage: 580 MG, UNK
     Route: 041
     Dates: start: 20100511
  2. RITUXIMAB [Suspect]
     Dosage: 565 MG, UNK
     Route: 041
     Dates: start: 20100606
  3. RITUXIMAB [Suspect]
     Dosage: 545 MG, QAM
     Route: 041
     Dates: start: 20101006
  4. CASPOFUNGIN [Concomitant]
     Indication: PRODUCT USED FOR UNKNOWN INDICATION
     Dosage: UNK
     Dates: start: 20100809
  5. RITUXIMAB [Suspect]
     Dosage: 545 MG, QAM
     Route: 041
     Dates: start: 20101208
  6. CYTARABINE [Suspect]
     Dosage: 3.1 G, UNK
     Route: 042
     Dates: start: 20100512, end: 20100513
  7. CYTARABINE [Suspect]
     Indication: MANTLE CELL LYMPHOMA
     Dosage: 3.1 G, UNK
     Route: 042
     Dates: start: 20100420, end: 20100421
  8. CYTARABINE [Suspect]
     Dosage: 3.1 G, UNK
     Route: 042
     Dates: start: 20100630, end: 20100701
  9. RITUXIMAB [Suspect]
     Dosage: 545 MG, Q2M
     Route: 041
     Dates: end: 20110203
  10. MELPHALAN [Suspect]
     Indication: MANTLE CELL LYMPHOMA
     Dosage: 140 MG/M2, QAM
     Route: 065
     Dates: start: 20100803
  11. RITUXIMAB [Suspect]
     Indication: MANTLE CELL LYMPHOMA
     Dosage: 580 MG, UNK
     Route: 041
     Dates: start: 20100423
  12. CYTARABINE [Suspect]
     Dosage: 400 MG/M2, QAM
     Route: 042
     Dates: start: 20100730, end: 20100802
  13. DEXAMETHASONE [Suspect]
     Indication: MANTLE CELL LYMPHOMA
     Dosage: UNK
     Route: 042
  14. RITUXIMAB [Suspect]
     Dosage: 560 MG, UNK
     Route: 041
     Dates: start: 20100630
  15. CYTARABINE [Suspect]
     Dosage: 3.1 G, UNK
     Route: 042
     Dates: start: 20100608, end: 20100609
  16. CISPLATIN [Suspect]
     Indication: MANTLE CELL LYMPHOMA
     Dosage: 155 MG, UNK
     Route: 042
     Dates: start: 20100420
  17. CISPLATIN [Suspect]
     Dosage: 155 MG, UNK
     Route: 042
     Dates: start: 20100512
  18. ETOPOSIDE [Suspect]
     Indication: MANTLE CELL LYMPHOMA
     Dosage: 400 MG/M2, QAM
     Route: 065
     Dates: start: 20100730, end: 20100802

REACTIONS (4)
  - RENAL FAILURE ACUTE [None]
  - HEPATOCELLULAR INJURY [None]
  - BACTERIAL SEPSIS [None]
  - GALLBLADDER ABSCESS [None]
